FAERS Safety Report 14720990 (Version 1)
Quarter: 2018Q2

REPORT INFORMATION
  Report Type: Spontaneous
  Country: PT (occurrence: PT)
  Receive Date: 20180405
  Receipt Date: 20180405
  Transmission Date: 20180711
  Serious: Yes (Disabling)
  Sender: FDA-Public Use
  Company Number: PHHY2018PT059146

PATIENT
  Age: 85 Year
  Sex: Female
  Weight: 55 kg

DRUGS (3)
  1. MOMETASONA FUROATO [Suspect]
     Active Substance: MOMETASONE FUROATE
     Indication: RESPIRATORY TRACT INFECTION
     Dosage: 2 OT (UG/L), QD
     Route: 045
     Dates: start: 20171225, end: 20180101
  2. LOSARTAN. [Concomitant]
     Active Substance: LOSARTAN
     Indication: HYPERTENSION
     Dosage: 50 MG, QD
     Route: 048
     Dates: start: 2013
  3. AZITHROMYCIN ANHYDROUS. [Suspect]
     Active Substance: AZITHROMYCIN ANHYDROUS
     Indication: RESPIRATORY TRACT INFECTION
     Dosage: 500 MG, UNK
     Route: 048
     Dates: start: 20171225, end: 20180130

REACTIONS (1)
  - Anosmia [Not Recovered/Not Resolved]

NARRATIVE: CASE EVENT DATE: 20180111
